FAERS Safety Report 5221702-3 (Version None)
Quarter: 2007Q1

REPORT INFORMATION
  Report Type: 
  Country: None (occurrence: None)
  Receive Date: 20070129
  Receipt Date: 20070123
  Transmission Date: 20070707
  Serious: Yes (Other)
  Sender: FDA-Public Use
  Company Number: US-SHR-US-2006-018363

PATIENT
  Age: 62 Year
  Sex: Female
  Weight: 65.8 kg

DRUGS (5)
  1. CLIMARA [Suspect]
     Indication: HORMONE REPLACEMENT THERAPY
     Dosage: .05 MG/D, CONT
     Route: 062
     Dates: start: 19960101, end: 20020101
  2. PREMARIN [Suspect]
     Indication: HORMONE REPLACEMENT THERAPY
     Dates: start: 19860101, end: 19930101
  3. PROVERA [Suspect]
     Indication: HORMONE REPLACEMENT THERAPY
     Dosage: 5 MG, UNK
     Dates: start: 19860101, end: 20020101
  4. MENEST [Suspect]
     Dosage: .625 MG, UNK
     Dates: start: 19940101, end: 19950101
  5. MEDROXYPROGESTERONE [Suspect]
     Dosage: 5 MG, UNK
     Dates: start: 19860101, end: 20020101

REACTIONS (5)
  - ARTERIOSCLEROSIS [None]
  - BONE DENSITY DECREASED [None]
  - BREAST CANCER FEMALE [None]
  - FIBROCYSTIC BREAST DISEASE [None]
  - UTERINE LEIOMYOMA [None]
